FAERS Safety Report 8830639 (Version 2)
Quarter: 2013Q1

REPORT INFORMATION
  Report Type: Spontaneous
  Country: US (occurrence: US)
  Receive Date: 20121009
  Receipt Date: 20130116
  Transmission Date: 20140127
  Serious: Yes (Hospitalization)
  Sender: FDA-Public Use
  Company Number: US-BAYER-2012-103654

PATIENT
  Age: 22 Year
  Sex: Female
  Weight: 68.03 kg

DRUGS (9)
  1. YASMIN [Suspect]
     Indication: ACNE
     Dosage: UNK
     Dates: start: 200411, end: 200502
  2. VICODIN [Concomitant]
  3. LEXAPRO [Concomitant]
  4. MULTIVITAMIN [Concomitant]
  5. VITAMINS [Concomitant]
  6. ASA [Concomitant]
  7. ROBAXIN [Concomitant]
  8. MOTRIN [Concomitant]
  9. DARVON [Concomitant]

REACTIONS (7)
  - Deep vein thrombosis [None]
  - Pain [None]
  - Injury [None]
  - General physical health deterioration [None]
  - Emotional distress [None]
  - Anxiety [None]
  - Pain [None]
